FAERS Safety Report 5096466-7 (Version None)
Quarter: 2006Q3

REPORT INFORMATION
  Report Type: 
  Country: None (occurrence: None)
  Receive Date: 20060905
  Receipt Date: 20060710
  Transmission Date: 20061208
  Serious: Yes (Life-Threatening)
  Sender: FDA-Public Use
  Company Number: JP-SANOFI-SYNTHELABO-A01200605323

PATIENT
  Sex: Male
  Weight: 59.5 kg

DRUGS (6)
  1. NOVOLIN N [Concomitant]
     Indication: DIABETES MELLITUS
     Route: 058
     Dates: start: 20060529
  2. PREDONINE [Concomitant]
     Indication: POLYMYALGIA RHEUMATICA
     Route: 048
     Dates: start: 20060712
  3. HORNEL [Concomitant]
     Indication: HYPERPARATHYROIDISM SECONDARY
     Route: 048
     Dates: start: 20020101
  4. OMEPRAZOLE [Concomitant]
     Indication: REFLUX OESOPHAGITIS
     Route: 048
     Dates: start: 20010101
  5. MERISLON [Concomitant]
     Indication: DIZZINESS
     Route: 048
     Dates: start: 20000101
  6. PLAVIX [Suspect]
     Indication: PROPHYLAXIS
     Route: 048
     Dates: start: 20060523, end: 20060707

REACTIONS (4)
  - AGRANULOCYTOSIS [None]
  - ENTEROCOCCAL SEPSIS [None]
  - LEUKOPENIA [None]
  - NEUTROPENIA [None]
